FAERS Safety Report 21655271 (Version 2)
Quarter: 2022Q4

REPORT INFORMATION
  Report Type: Spontaneous
  Country: DE (occurrence: DE)
  Receive Date: 20221129
  Receipt Date: 20221214
  Transmission Date: 20230113
  Serious: Yes (Hospitalization, Other)
  Sender: FDA-Public Use
  Company Number: None

PATIENT
  Age: 70 Year
  Sex: Female
  Weight: 110 kg

DRUGS (4)
  1. DOXORUBICIN HYDROCHLORIDE [Suspect]
     Active Substance: DOXORUBICIN HYDROCHLORIDE
     Indication: Ovarian cancer
     Dosage: 60 MG, TOTAL, PZN: 00735279
     Route: 042
     Dates: start: 20221110
  2. AKYNZEO [Concomitant]
     Indication: Prophylaxis of nausea and vomiting
     Dosage: (STRENGTH: 300 MG/0.5 MG), 1 H BEFORE CTX, PZN: 11175406
     Route: 048
     Dates: start: 20221110
  3. CLEMASTINE FUMARATE [Concomitant]
     Active Substance: CLEMASTINE FUMARATE
     Indication: Prophylaxis of nausea and vomiting
     Dosage: (2 MG/2ML AMPOULES), DOSE: 2 MG TOTAL, BEFORE CTX, PZN: 10130643
     Route: 042
     Dates: start: 20221110
  4. DEXAMETHASONE SODIUM PHOSPHATE [Concomitant]
     Active Substance: DEXAMETHASONE SODIUM PHOSPHATE
     Indication: Prophylaxis of nausea and vomiting
     Dosage: (AMPOULES), DOSE: 8 MG, TOTAL, BEFORE CTX, PZN: 04907990
     Route: 042
     Dates: start: 20221110

REACTIONS (5)
  - Loss of consciousness [Recovered/Resolved]
  - Blood pressure immeasurable [Recovering/Resolving]
  - Anaphylactic reaction [Recovering/Resolving]
  - Flushing [Recovered/Resolved]
  - Nausea [Recovering/Resolving]

NARRATIVE: CASE EVENT DATE: 20221110
